FAERS Safety Report 16445758 (Version 3)
Quarter: 2019Q3

REPORT INFORMATION
  Report Type: Spontaneous
  Country: US (occurrence: US)
  Receive Date: 20190618
  Receipt Date: 20190820
  Transmission Date: 20191004
  Serious: Yes (Hospitalization)
  Sender: FDA-Public Use
  Company Number: US-PARI RESPIRATORY EQUIPMENT, INC.-2019PAR00049

PATIENT
  Age: 8 Year
  Sex: Female
  Weight: 27.21 kg

DRUGS (28)
  1. KITABIS PAK [Suspect]
     Active Substance: TOBRAMYCIN
     Indication: RESPIRATION ABNORMAL
     Dosage: 300 MG, 2X/DAY (28 DAYS ON AND 28 DAYS OFF)
     Dates: start: 20190401
  2. CLONIDINE HCL [Concomitant]
     Active Substance: CLONIDINE HYDROCHLORIDE
     Dosage: UNK, 1X/WEEK
  3. LEVETIRACETAM. [Concomitant]
     Active Substance: LEVETIRACETAM
     Dosage: 1.5 ML, 2X/DAY
     Dates: start: 20130530
  4. COLACE [Concomitant]
     Active Substance: DOCUSATE SODIUM
  5. IRON ER [Concomitant]
  6. ZENPEP [Concomitant]
     Active Substance: PANCRELIPASE AMYLASE\PANCRELIPASE LIPASE\PANCRELIPASE PROTEASE
  7. GRAVITY FEEDING SET [Concomitant]
     Dosage: 1 DOSAGE UNITS, 2X/DAY
     Dates: start: 20140812
  8. ROPINIROLE ER [Concomitant]
     Active Substance: ROPINIROLE
  9. ALBUTEROL SULFATE 0.083% [Concomitant]
     Dosage: 1 U, EVERY 4 TO 6 HOURS AS NEEDED
     Dates: start: 20170417
  10. SENNA [Concomitant]
     Active Substance: SENNA LEAF\SENNOSIDES\SENNOSIDES A AND B
  11. PHENOBARBITAL. [Concomitant]
     Active Substance: PHENOBARBITAL
     Dosage: 7.5 ML, 2X/DAY
  12. CLOTRIMAZOLE. [Concomitant]
     Active Substance: CLOTRIMAZOLE
  13. GLYCOPYRROLATE. [Concomitant]
     Active Substance: GLYCOPYRROLATE
     Dosage: 1.75 ML, 3X/DAY
     Dates: start: 20180530
  14. LEVETIRACETAM. [Concomitant]
     Active Substance: LEVETIRACETAM
     Dosage: 9.8 ML, 2X/DAY
  15. KITABIS PAK [Suspect]
     Active Substance: TOBRAMYCIN
     Indication: LUNG DISORDER
  16. ZANTAC [Concomitant]
     Active Substance: RANITIDINE HYDROCHLORIDE
  17. SODIUM CHLORIDE 3% [Concomitant]
     Active Substance: SODIUM CHLORIDE
     Dosage: 1 DOSAGE UNITS, 2X/DAY
     Dates: start: 20170413
  18. DIGOXIN. [Concomitant]
     Active Substance: DIGOXIN
  19. ALBUTEROL SULFATE 0.083% [Concomitant]
     Dosage: 1 DOSAGE UNITS, 2X/DAY (MIX WITH HYPERTONIC SALINE AND GIVE DURING VEST TREATMENTS)
  20. KEPPRA [Concomitant]
     Active Substance: LEVETIRACETAM
  21. MIRALAX [Concomitant]
     Active Substance: POLYETHYLENE GLYCOL 3350
     Dosage: 1 TSP, 2X/DAY
     Dates: start: 20130227
  22. SODIUM CHLORIDE. [Concomitant]
     Active Substance: SODIUM CHLORIDE
  23. VEST THERAPY [Concomitant]
     Dosage: 20-30 MINUTES 2X/DAY
  24. KITABIS PAK [Suspect]
     Active Substance: TOBRAMYCIN
     Indication: TRACHEOSTOMY
  25. PULMICORT TURBUHALER [Concomitant]
     Active Substance: BUDESONIDE
     Dosage: 1 DOSAGE UNITS, 1X/DAY
     Dates: start: 20180926
  26. VIMPAT [Concomitant]
     Active Substance: LACOSAMIDE
     Dosage: 5 ML, 2X/DAY
  27. HYPERSAL [Concomitant]
     Active Substance: SODIUM CHLORIDE
     Dosage: 1 DOSAGE UNITS, 2X/DAY (WITH VEST TREATMENTS)
  28. NYSTATIN. [Concomitant]
     Active Substance: NYSTATIN

REACTIONS (3)
  - Increased upper airway secretion [Recovered/Resolved]
  - Oxygen saturation decreased [Recovered/Resolved]
  - Off label use [Not Recovered/Not Resolved]

NARRATIVE: CASE EVENT DATE: 201904
